FAERS Safety Report 8574080-6 (Version None)
Quarter: 2012Q2

REPORT INFORMATION
  Report Type: 
  Country: None (occurrence: None)
  Receive Date: 20120423
  Receipt Date: 20100702
  Transmission Date: 20120825
  Serious: Yes (Other)
  Sender: FDA-Public Use
  Company Number: PHHY2010US30201

PATIENT
  Sex: Female

DRUGS (8)
  1. ERGOCALCIFEROL [Concomitant]
  2. EXJADE [Suspect]
     Dosage: 1500 MG, DAILY
     Dates: start: 20091201
  3. BONIVA [Concomitant]
  4. PROCRIT [Concomitant]
  5. AMARYL [Concomitant]
  6. PRAVACHOL [Concomitant]
  7. ASPIRIN [Concomitant]
  8. ALLEGRA [Concomitant]

REACTIONS (7)
  - BLOOD ALBUMIN INCREASED [None]
  - BLOOD CREATININE INCREASED [None]
  - BLOOD UREA INCREASED [None]
  - RENAL IMPAIRMENT [None]
  - RALES [None]
  - CARBON DIOXIDE DECREASED [None]
  - PROTEIN TOTAL INCREASED [None]
